FAERS Safety Report 14315342 (Version 1)
Quarter: 2020Q3

REPORT INFORMATION
  Report Type: Spontaneous
  Country: GB (occurrence: GB)
  Receive Date: 20171221
  Receipt Date: 20171221
  Transmission Date: 20201104
  Serious: Yes (Hospitalization, Disabling)
  Sender: FDA-Public Use
  Company Number: GB-TEVA-2017-GB-833847

PATIENT
  Age: 85 Year
  Sex: Female

DRUGS (12)
  1. IBANDRONIC ACID. [Suspect]
     Active Substance: IBANDRONIC ACID
     Indication: OSTEOPOROTIC FRACTURE
     Route: 048
     Dates: start: 20161208, end: 20171027
  2. LACTULOSE. [Concomitant]
     Active Substance: LACTULOSE
  3. PARACETAMOL [Concomitant]
     Active Substance: ACETAMINOPHEN
  4. MEMANTINE. [Concomitant]
     Active Substance: MEMANTINE
  5. DONEPEZIL. [Concomitant]
     Active Substance: DONEPEZIL
  6. HYDROXOCOBALAMIN [Concomitant]
     Active Substance: HYDROXOCOBALAMIN
  7. MIRTAZAPINE. [Concomitant]
     Active Substance: MIRTAZAPINE
  8. CO?AMOXICLAV [Concomitant]
     Active Substance: AMOXICILLIN\CLAVULANATE POTASSIUM
  9. BUTEC [Concomitant]
     Active Substance: BUPRENORPHINE
     Route: 062
  10. LEVOTHYROXINE. [Concomitant]
     Active Substance: LEVOTHYROXINE
  11. NYSTATIN. [Concomitant]
     Active Substance: NYSTATIN
  12. CALCICHEW D3 [Concomitant]
     Active Substance: CALCIUM\CHOLECALCIFEROL

REACTIONS (3)
  - Mouth ulceration [Recovering/Resolving]
  - Chemical burn of oral cavity [Recovering/Resolving]
  - Product administration error [Recovering/Resolving]

NARRATIVE: CASE EVENT DATE: 20170826
